FAERS Safety Report 7437426-8 (Version None)
Quarter: 2011Q2

REPORT INFORMATION
  Report Type: 
  Country: None (occurrence: None)
  Receive Date: 20110426
  Receipt Date: 20100805
  Transmission Date: 20111010
  Serious: No
  Sender: FDA-Public Use
  Company Number: US-PFIZER INC-2010099260

PATIENT
  Sex: Female

DRUGS (2)
  1. METRONIDAZOLE [Concomitant]
  2. ESTRING [Suspect]

REACTIONS (1)
  - VAGINITIS BACTERIAL [None]
